FAERS Safety Report 6683208-4 (Version None)
Quarter: 2010Q2

REPORT INFORMATION
  Report Type: 
  Country: None (occurrence: None)
  Receive Date: 20100415
  Receipt Date: 20100405
  Transmission Date: 20101027
  Serious: Yes (Other)
  Sender: FDA-Public Use
  Company Number: US-BAXTER-2010BH009004

PATIENT

DRUGS (8)
  1. IFOSFAMIDE [Suspect]
     Indication: HEAD AND NECK CANCER
     Route: 042
  2. PACLITAXEL [Suspect]
     Indication: HEAD AND NECK CANCER
     Route: 042
  3. CARBOPLATIN [Suspect]
     Indication: HEAD AND NECK CANCER
     Route: 042
  4. MESNA [Concomitant]
     Indication: HEAD AND NECK CANCER
     Route: 042
  5. DEXAMETHASONE [Concomitant]
     Indication: PREMEDICATION
     Route: 042
  6. DIPHENHYDRAMINE HYDROCHLORIDE [Concomitant]
     Indication: PREMEDICATION
     Route: 042
  7. CIMETIDINE [Concomitant]
     Indication: PREMEDICATION
     Route: 042
  8. DEXAMETHASONE [Concomitant]
     Indication: INFLAMMATION
     Route: 048

REACTIONS (2)
  - ARTHRALGIA [None]
  - MYALGIA [None]
